FAERS Safety Report 5746253-9 (Version None)
Quarter: 2008Q2

REPORT INFORMATION
  Report Type: 
  Country: None (occurrence: None)
  Receive Date: 20080522
  Receipt Date: 20080514
  Transmission Date: 20081010
  Serious: Yes (Hospitalization, Other)
  Sender: FDA-Public Use
  Company Number: GB-BAYER-200811182BNE

PATIENT
  Age: 29 Year
  Sex: Male
  Weight: 89 kg

DRUGS (2)
  1. MAGNEVIST [Suspect]
     Indication: DRUG USE FOR UNKNOWN INDICATION
     Route: 042
     Dates: start: 20080501
  2. TETRACYCLINE [Concomitant]
     Indication: ACNE
     Route: 065
     Dates: start: 20080430

REACTIONS (8)
  - DYSPNOEA [None]
  - ERYTHEMA [None]
  - FEELING HOT [None]
  - HEADACHE [None]
  - LACRIMATION INCREASED [None]
  - NECK PAIN [None]
  - RHINORRHOEA [None]
  - URTICARIA [None]
